FAERS Safety Report 5387333-X (Version None)
Quarter: 2007Q3

REPORT INFORMATION
  Report Type: 
  Country: None (occurrence: None)
  Receive Date: 20070716
  Receipt Date: 20070709
  Transmission Date: 20080115
  Serious: Yes (Other)
  Sender: FDA-Public Use
  Company Number: PHBS2007DE10310

PATIENT
  Sex: Female

DRUGS (1)
  1. TERBINAFINE HCL [Suspect]

REACTIONS (3)
  - DEPRESSED MOOD [None]
  - DEPRESSION [None]
  - SUICIDAL IDEATION [None]
